FAERS Safety Report 8486707-8 (Version None)
Quarter: 2012Q3

REPORT INFORMATION
  Report Type: 
  Country: None (occurrence: None)
  Receive Date: 20120704
  Receipt Date: 20120620
  Transmission Date: 20120928
  Serious: Yes (Death, Other)
  Sender: FDA-Public Use
  Company Number: US-RANBAXY-2012US-57414

PATIENT
  Sex: Female

DRUGS (1)
  1. FAMOTIDINE [Suspect]
     Indication: HYPERCHLORHYDRIA
     Dosage: 10 MG, BID
     Route: 065

REACTIONS (2)
  - ANAEMIA [None]
  - CARDIAC FLUTTER [None]
